FAERS Safety Report 9837778 (Version 1)
Quarter: 2014Q1

REPORT INFORMATION
  Report Type: Spontaneous
  Country: US (occurrence: None)
  Receive Date: 20140117
  Receipt Date: 20140117
  Transmission Date: 20141002
  Serious: Yes (Other)
  Sender: FDA-Public Use
  Company Number: None

PATIENT
  Age: 38 Year
  Sex: Male

DRUGS (3)
  1. CYMBALTA [Suspect]
     Indication: BACK PAIN
  2. CYMBALTA [Suspect]
     Indication: STRESS AT WORK
  3. ABILIFY [Concomitant]

REACTIONS (1)
  - Suicidal ideation [None]
